FAERS Safety Report 24286247 (Version 1)
Quarter: 2024Q3

REPORT INFORMATION
  Report Type: Spontaneous
  Country: US (occurrence: US)
  Receive Date: 20240905
  Receipt Date: 20240905
  Transmission Date: 20241016
  Serious: Yes (Other)
  Sender: PFIZER
  Company Number: US-PFIZER INC-202400249824

PATIENT
  Age: 15 Year
  Sex: Female

DRUGS (3)
  1. VORICONAZOLE [Suspect]
     Active Substance: VORICONAZOLE
     Indication: Prophylaxis
     Dosage: UNK
  2. VORICONAZOLE [Suspect]
     Active Substance: VORICONAZOLE
     Indication: Aspergillus infection
  3. VORICONAZOLE [Suspect]
     Active Substance: VORICONAZOLE
     Indication: Haemophagocytic lymphohistiocytosis

REACTIONS (18)
  - Pyrexia [Unknown]
  - Rash [Unknown]
  - Abdominal pain [Unknown]
  - Diarrhoea [Unknown]
  - Arthralgia [Unknown]
  - Cardiac murmur [Unknown]
  - Hypotension [Unknown]
  - Pleural effusion [Unknown]
  - Platelet count decreased [Unknown]
  - Red blood cell sedimentation rate increased [Unknown]
  - Fibrin D dimer increased [Unknown]
  - Blood fibrinogen decreased [Unknown]
  - Serum ferritin increased [Unknown]
  - Complement factor C3 decreased [Unknown]
  - Complement factor C4 decreased [Unknown]
  - Blood lactate dehydrogenase increased [Unknown]
  - Blood triglycerides increased [Unknown]
  - Off label use [Unknown]
